FAERS Safety Report 8199722-9 (Version None)
Quarter: 2012Q1

REPORT INFORMATION
  Report Type: 
  Country: None (occurrence: None)
  Receive Date: 20120311
  Receipt Date: 20120305
  Transmission Date: 20120608
  Serious: Yes (Hospitalization)
  Sender: FDA-Public Use
  Company Number: PHEH2011US07645

PATIENT
  Sex: Female

DRUGS (5)
  1. OXYGEN THERAPY [Concomitant]
  2. EXJADE [Suspect]
     Indication: IRON METABOLISM DISORDER
     Dosage: 1000 MG, DAILY
     Route: 048
     Dates: start: 20060526
  3. CAPTOPRIL AND HYDROCHLOROTHIAZIDE [Concomitant]
     Dosage: 25 MG, UNK
  4. TRANSFUSIONS [Concomitant]
  5. HYDROCORTISONE [Concomitant]
     Dosage: 05 MG, UNK

REACTIONS (4)
  - HAEMOGLOBIN DECREASED [None]
  - DYSPNOEA [None]
  - CYSTIC FIBROSIS [None]
  - RED BLOOD CELL COUNT DECREASED [None]
